FAERS Safety Report 5795964-8 (Version None)
Quarter: 2008Q3

REPORT INFORMATION
  Report Type: 
  Country: None (occurrence: None)
  Receive Date: 20080701
  Receipt Date: 20080625
  Transmission Date: 20090109
  Serious: Yes (Death)
  Sender: FDA-Public Use
  Company Number: CA-JNJFOC-20080606572

PATIENT
  Age: 70 Year
  Sex: Male

DRUGS (22)
  1. DURAGESIC-100 [Suspect]
     Indication: DRUG USE FOR UNKNOWN INDICATION
     Route: 062
  2. CLONAZEPAM [Suspect]
     Indication: DRUG USE FOR UNKNOWN INDICATION
  3. CODEINE [Suspect]
     Indication: DRUG USE FOR UNKNOWN INDICATION
  4. DILAUDID [Suspect]
     Indication: DRUG USE FOR UNKNOWN INDICATION
  5. FLURAZEPAM HYDROCHLORIDE [Suspect]
     Indication: DRUG USE FOR UNKNOWN INDICATION
     Route: 048
  6. FLUVOXAMINE MALEATE [Suspect]
     Indication: DRUG USE FOR UNKNOWN INDICATION
  7. ACETAMINOPHEN [Concomitant]
  8. ACETAMINOPHEN W/ CODEINE [Concomitant]
  9. APO-CAL [Concomitant]
  10. ASPIRIN [Concomitant]
  11. COLACE [Concomitant]
  12. CORDARONE [Concomitant]
  13. GRAVOL TAB [Concomitant]
  14. HEMODIALYSIS [Concomitant]
  15. LIPITOR [Concomitant]
  16. LOSEC I.V. [Concomitant]
  17. MOTILIUM [Concomitant]
  18. NITRO-DUR [Concomitant]
  19. OXAZEPAM [Concomitant]
  20. SENOKOT [Concomitant]
  21. SYNTHROID [Concomitant]
  22. VIOXX [Concomitant]

REACTIONS (7)
  - CONFUSIONAL STATE [None]
  - DISORIENTATION [None]
  - ECCHYMOSIS [None]
  - FATIGUE [None]
  - PATHOLOGICAL FRACTURE [None]
  - RESPIRATORY FAILURE [None]
  - RIB FRACTURE [None]
